FAERS Safety Report 5286950-5 (Version None)
Quarter: 2007Q1

REPORT INFORMATION
  Report Type: 
  Country: None (occurrence: None)
  Receive Date: 20070329
  Receipt Date: 20070321
  Transmission Date: 20070707
  Serious: Yes (Other)
  Sender: FDA-Public Use
  Company Number: GRP07000041

PATIENT
  Age: 69 Year
  Sex: Male

DRUGS (1)
  1. ACTONEL [Suspect]
     Indication: OSTEOPOROSIS
     Dosage: 5 MG, 1/DAY, ORAL
     Route: 048
     Dates: start: 20050101

REACTIONS (1)
  - GASTRIC CANCER [None]
